FAERS Safety Report 14988666 (Version 1)
Quarter: 2018Q2

REPORT INFORMATION
  Report Type: Spontaneous
  Country: NO (occurrence: NO)
  Receive Date: 20180608
  Receipt Date: 20180608
  Transmission Date: 20180711
  Serious: Yes (Death)
  Sender: FDA-Public Use
  Company Number: NO-BAUSCH-BL-2018-016056

PATIENT
  Age: 77 Year
  Sex: Female

DRUGS (2)
  1. GENTAMICIN SULFATE. [Suspect]
     Active Substance: GENTAMICIN SULFATE
     Indication: WHIPPLE^S DISEASE
     Route: 065
  2. PENICILLIN-G SODIUM [Suspect]
     Active Substance: PENICILLIN G SODIUM
     Indication: WHIPPLE^S DISEASE
     Route: 065

REACTIONS (5)
  - Respiratory failure [None]
  - Disseminated intravascular coagulation [None]
  - Treatment failure [Fatal]
  - Sepsis syndrome [None]
  - Renal failure [None]
